FAERS Safety Report 9679718 (Version 2)
Quarter: 2013Q4

REPORT INFORMATION
  Report Type: Spontaneous
  Country: US (occurrence: US)
  Receive Date: 20131109
  Receipt Date: 20131109
  Transmission Date: 20140711
  Serious: No
  Sender: FDA-Public Use
  Company Number: US-BAXTER-2013BAX002980

PATIENT
  Sex: Male

DRUGS (2)
  1. DIANEAL LOW CALCIUM [Suspect]
     Indication: PERITONEAL DIALYSIS
     Dosage: 2200CC PLUS A LAST FILL OF 1200CC
     Route: 033
     Dates: start: 20110601
  2. DIANEAL LOW CALCIUM (ULTRABAG) [Suspect]
     Indication: PERITONEAL DIALYSIS
     Dosage: 2000 CC
     Route: 033
     Dates: start: 20110601

REACTIONS (1)
  - Procedural pain [Not Recovered/Not Resolved]
